FAERS Safety Report 8179309-4 (Version None)
Quarter: 2012Q1

REPORT INFORMATION
  Report Type: 
  Country: None (occurrence: None)
  Receive Date: 20120229
  Receipt Date: 20120229
  Transmission Date: 20120608
  Serious: Yes (Other)
  Sender: FDA-Public Use
  Company Number: None

PATIENT
  Age: 69 Year
  Sex: Female
  Weight: 79.3795 kg

DRUGS (1)
  1. RECLAST [Suspect]
     Indication: OSTEOPOROSIS
     Dosage: INJECTION
     Dates: start: 20120204

REACTIONS (6)
  - MIGRAINE [None]
  - CHILLS [None]
  - ARTHRALGIA [None]
  - PYREXIA [None]
  - NAUSEA [None]
  - VOMITING [None]
